FAERS Safety Report 8821053 (Version 1)
Quarter: 2012Q4

REPORT INFORMATION
  Report Type: 
  Country: JP (occurrence: JP)
  Receive Date: 20121002
  Receipt Date: 20121002
  Transmission Date: 20130627
  Serious: Yes (Other)
  Sender: FDA-Public Use
  Company Number: JP-ROCHE-1136324

PATIENT
  Sex: Male

DRUGS (12)
  1. AVASTIN [Suspect]
     Indication: COLON CANCER METASTATIC
     Dosage: Dosage is uncertain.
     Route: 041
  2. AVASTIN [Suspect]
     Indication: COLON CANCER METASTATIC
     Dosage: Dosage is uncertain.
     Route: 041
  3. XELODA [Suspect]
     Indication: COLON CANCER METASTATIC
     Dosage: Dosage is uncertain.
     Route: 048
  4. ELPLAT [Concomitant]
     Indication: COLON CANCER METASTATIC
     Dosage: Dosage is uncertain.
     Route: 041
  5. ELPLAT [Concomitant]
     Indication: COLON CANCER METASTATIC
     Dosage: Dosage is uncertain.
     Route: 041
  6. 5-FU [Concomitant]
     Indication: COLON CANCER METASTATIC
     Dosage: Dosage is uncertain.
     Route: 040
  7. 5-FU [Concomitant]
     Indication: COLON CANCER METASTATIC
     Dosage: Dosage is uncertain.
     Route: 041
  8. 5-FU [Concomitant]
     Indication: COLON CANCER METASTATIC
     Dosage: Dosage is uncertain.
     Route: 040
  9. 5-FU [Concomitant]
     Indication: COLON CANCER METASTATIC
     Dosage: Dosage is uncertain.
     Route: 041
  10. LEVOFOLINATE [Concomitant]
     Indication: COLON CANCER METASTATIC
     Dosage: Dosage is uncertain.
     Route: 041
  11. LEVOFOLINATE [Concomitant]
     Indication: COLON CANCER METASTATIC
     Dosage: Dosage is uncertain.
     Route: 041
  12. IRINOTECAN HYDROCHLORIDE [Concomitant]
     Indication: COLON CANCER METASTATIC
     Dosage: Dosage is uncertain.
     Route: 041

REACTIONS (8)
  - Altered state of consciousness [Unknown]
  - Cerebral ischaemia [Recovered/Resolved]
  - Posterior reversible encephalopathy syndrome [Unknown]
  - Insomnia [Unknown]
  - Hallucination, visual [Recovered/Resolved]
  - Visual impairment [Unknown]
  - Nausea [Unknown]
  - Dizziness [Unknown]
